FAERS Safety Report 20876343 (Version 2)
Quarter: 2022Q2

REPORT INFORMATION
  Report Type: Spontaneous
  Country: NZ (occurrence: NZ)
  Receive Date: 20220526
  Receipt Date: 20220615
  Transmission Date: 20220721
  Serious: Yes (Death)
  Sender: FDA-Public Use
  Company Number: NZ-MYLANLABS-2022M1038955

PATIENT
  Age: 66 Year
  Sex: Female

DRUGS (6)
  1. CLOZARIL [Suspect]
     Active Substance: CLOZAPINE
     Indication: Schizophrenia
     Dosage: UNK MILLIGRAM
     Route: 048
     Dates: start: 19960620, end: 20220418
  2. CLOZARIL [Suspect]
     Active Substance: CLOZAPINE
     Dosage: 300 MILLIGRAM, QD 3 TABLETS (300 MG) AT NIGHT
     Route: 048
     Dates: start: 1998
  3. LACTULOSE [Concomitant]
     Active Substance: LACTULOSE
     Dosage: 15-20 ML , PRN
     Route: 048
     Dates: start: 1998
  4. PAROXETINE [Concomitant]
     Active Substance: PAROXETINE
     Dosage: 20 MILLIGRAM, AM 1 TABLET MANE
     Route: 048
     Dates: start: 2010
  5. OXYBUTYNIN CHLORIDE [Concomitant]
     Active Substance: OXYBUTYNIN CHLORIDE
     Dosage: 5 MILLIGRAM, QD 1 TAB NOCTE
     Route: 048
     Dates: start: 2010
  6. ATORVASTATIN [Concomitant]
     Active Substance: ATORVASTATIN
     Indication: Hypercholesterolaemia
     Dosage: 20 MILLIGRAM 1 TAB
     Route: 048
     Dates: start: 2013

REACTIONS (5)
  - Death [Fatal]
  - Haematocrit increased [Unknown]
  - White blood cell count increased [Unknown]
  - Neutrophil count increased [Unknown]
  - Glycosylated haemoglobin increased [Unknown]

NARRATIVE: CASE EVENT DATE: 20220317
